FAERS Safety Report 11838243 (Version 1)
Quarter: 2015Q4

REPORT INFORMATION
  Report Type: Spontaneous
  Country: DE (occurrence: DE)
  Receive Date: 20151215
  Receipt Date: 20151215
  Transmission Date: 20160305
  Serious: Yes (Life-Threatening)
  Sender: FDA-Public Use
  Company Number: DE-TEVA-617465GER

PATIENT
  Age: 17 Year
  Sex: Male
  Weight: 54 kg

DRUGS (8)
  1. AMANTADIN [Suspect]
     Active Substance: AMANTADINE
     Dosage: 200 MILLIGRAM DAILY;
     Route: 048
     Dates: start: 20150825, end: 20150831
  2. AMANTADIN [Suspect]
     Active Substance: AMANTADINE
     Dosage: 100 MILLIGRAM DAILY;
     Route: 048
     Dates: start: 20150901, end: 20150902
  3. BACLOFEN. [Concomitant]
     Active Substance: BACLOFEN
     Indication: PARESIS
     Dosage: 1325 MICROGRAM DAILY;
     Route: 037
     Dates: start: 201305
  4. GABAPENTIN. [Concomitant]
     Active Substance: GABAPENTIN
     Indication: NEURALGIA
     Dosage: 200 MILLIGRAM DAILY;
     Route: 048
     Dates: start: 20150824
  5. AMANTADIN [Suspect]
     Active Substance: AMANTADINE
     Indication: DEPRESSED LEVEL OF CONSCIOUSNESS
     Dosage: 100 MILLIGRAM DAILY;
     Route: 048
     Dates: start: 20150820, end: 20150824
  6. OMEPRAZOL [Concomitant]
     Active Substance: OMEPRAZOLE
     Indication: GASTRITIS
     Route: 048
  7. KEPPRA [Concomitant]
     Active Substance: LEVETIRACETAM
     Indication: EPILEPSY
     Dosage: 3 MILLIGRAM DAILY;
     Route: 048
     Dates: start: 201407
  8. MIRTAZAPIN [Concomitant]
     Active Substance: MIRTAZAPINE
     Indication: SLEEP DISORDER
     Dosage: 0-7.5MG-15MG
     Route: 048

REACTIONS (3)
  - Off label use [Unknown]
  - Apnoea [Recovered/Resolved]
  - Mechanical ventilation [Recovered/Resolved]

NARRATIVE: CASE EVENT DATE: 20150825
